FAERS Safety Report 7354473-5 (Version None)
Quarter: 2011Q1

REPORT INFORMATION
  Report Type: 
  Country: None (occurrence: None)
  Receive Date: 20110316
  Receipt Date: 20110228
  Transmission Date: 20110831
  Serious: Yes (Hospitalization, Other)
  Sender: FDA-Public Use
  Company Number: US-BAYER-201030165NA

PATIENT
  Sex: Female
  Weight: 71 kg

DRUGS (7)
  1. YASMIN [Suspect]
     Indication: ACNE
     Dosage: UNK
     Route: 048
     Dates: start: 20040101, end: 20041101
  2. PRAVACHOL [Concomitant]
     Indication: BLOOD CHOLESTEROL INCREASED
     Dosage: 80 MG, UNK
     Dates: start: 20040801, end: 20050601
  3. ORTHO-NOVUM [Concomitant]
     Dosage: UNK
     Dates: start: 20050626
  4. CLINDAMYCIN [Concomitant]
     Indication: ACNE
     Dosage: UNK
     Dates: start: 20050401, end: 20050501
  5. YASMIN [Suspect]
     Indication: MENORRHAGIA
  6. BENZOYL PEROXIDE [Concomitant]
     Indication: ACNE
     Dosage: UNK
     Dates: start: 20050401, end: 20050501
  7. MINOCYCLIN [Concomitant]
     Indication: ACNE
     Dosage: 100 MG, UNK
     Dates: start: 20050201, end: 20051201

REACTIONS (3)
  - PULMONARY EMBOLISM [None]
  - CHEST PAIN [None]
  - DEEP VEIN THROMBOSIS [None]
